FAERS Safety Report 9522426 (Version 2)
Quarter: 2013Q4

REPORT INFORMATION
  Report Type: Spontaneous
  Country: US (occurrence: US)
  Receive Date: 20130913
  Receipt Date: 20131023
  Transmission Date: 20140711
  Serious: No
  Sender: FDA-Public Use
  Company Number: US-PFIZER INC-2013263124

PATIENT
  Age: 67 Year
  Sex: Female
  Weight: 68.03 kg

DRUGS (4)
  1. LYRICA [Suspect]
     Indication: DIABETIC NEUROPATHY
     Dosage: 200 MG, 2X/DAY
     Route: 048
     Dates: start: 2013, end: 2013
  2. LYRICA [Suspect]
     Indication: NEURALGIA
  3. ASACOL HD [Concomitant]
     Dosage: 800 MG, 3X/DAY
  4. CYMBALTA [Concomitant]
     Dosage: 120 MG (BY TAKING TWO 60MG), 1X/DAY

REACTIONS (3)
  - Weight increased [Unknown]
  - Depression [Unknown]
  - Drug intolerance [Unknown]
